FAERS Safety Report 20460014 (Version 1)
Quarter: 2022Q1

REPORT INFORMATION
  Report Type: Spontaneous
  Country: FR (occurrence: FR)
  Receive Date: 20220211
  Receipt Date: 20220211
  Transmission Date: 20220423
  Serious: Yes (Hospitalization)
  Sender: FDA-Public Use
  Company Number: None

PATIENT
  Age: 34 Year
  Sex: Female

DRUGS (4)
  1. BUPRENORPHINE [Suspect]
     Active Substance: BUPRENORPHINE
     Dosage: NON RENSEIGN?E
     Route: 065
  2. CANNABIS SATIVA SUBSP. INDICA TOP [Suspect]
     Active Substance: CANNABIS SATIVA SUBSP. INDICA TOP
     Dosage: NON RENSEIGN?E
     Route: 055
  3. TOBACCO LEAF [Suspect]
     Active Substance: TOBACCO LEAF
     Dosage: 20 PA
     Route: 055
     Dates: start: 2003
  4. HEROIN [Suspect]
     Active Substance: DIAMORPHINE
     Dosage: NON RENSEIGN?E
     Route: 055

REACTIONS (5)
  - Pneumothorax [Recovered/Resolved with Sequelae]
  - Dyspnoea [Recovered/Resolved]
  - Drug abuse [Not Recovered/Not Resolved]
  - Chest pain [Recovering/Resolving]
  - Hyperhidrosis [Recovered/Resolved]

NARRATIVE: CASE EVENT DATE: 20210222
